FAERS Safety Report 8775868 (Version 1)
Quarter: 2012Q4

REPORT INFORMATION
  Report Type: 
  Country: BR (occurrence: BR)
  Receive Date: 20120910
  Receipt Date: 20120910
  Transmission Date: 20130627
  Serious: Yes (Other)
  Sender: FDA-Public Use
  Company Number: BR-009507513-1209BRA003670

PATIENT

DRUGS (1)
  1. COPPERTONE ULTRAGUARD SPF 50 [Suspect]
     Dosage: UNK
     Route: 061
     Dates: start: 201208

REACTIONS (1)
  - Hypersensitivity [Not Recovered/Not Resolved]
